FAERS Safety Report 9764504 (Version 3)
Quarter: 2014Q1

REPORT INFORMATION
  Report Type: Spontaneous
  Country: IT (occurrence: IT)
  Receive Date: 20131217
  Receipt Date: 20140307
  Transmission Date: 20141002
  Serious: Yes (Death, Disabling)
  Sender: FDA-Public Use
  Company Number: IT-BRISTOL-MYERS SQUIBB COMPANY-19891639

PATIENT
  Age: 50 Year
  Sex: Male

DRUGS (3)
  1. COUMADIN TABS 5 MG [Suspect]
     Indication: CARDIAC ABLATION
     Route: 048
     Dates: start: 20130909, end: 20131025
  2. CORDARONE [Concomitant]
     Dosage: CORDARONE 200MG TABS,1DF: 2UNITS
     Route: 048
  3. ALMARYTM [Concomitant]
     Dosage: ALMARYTM 100MG TABS,1DF: 1UNIT

REACTIONS (2)
  - Ear haemorrhage [Fatal]
  - Deafness [Not Recovered/Not Resolved]
